FAERS Safety Report 24870179 (Version 1)
Quarter: 2025Q1

REPORT INFORMATION
  Report Type: Spontaneous
  Country: US (occurrence: US)
  Receive Date: 20250121
  Receipt Date: 20250121
  Transmission Date: 20250409
  Serious: No
  Sender: SANOFI AVENTIS
  Company Number: US-SA-2025SA018017

PATIENT
  Age: 27 Year
  Sex: Male
  Weight: 90.91 kg

DRUGS (5)
  1. NEXVIAZYME [Suspect]
     Active Substance: AVALGLUCOSIDASE ALFA-NGPT
     Indication: Glycogen storage disease type II
     Dosage: 2000 MG, QOW
     Route: 042
     Dates: start: 202204
  2. DEXTROSE [Concomitant]
     Active Substance: DEXTROSE MONOHYDRATE
  3. DEXTROSE [Concomitant]
     Active Substance: DEXTROSE MONOHYDRATE
  4. STERILE WATER [Concomitant]
     Active Substance: WATER
  5. SODIUM CHLORIDE [Concomitant]
     Active Substance: SODIUM CHLORIDE

REACTIONS (1)
  - Weight decreased [Unknown]
